FAERS Safety Report 16172319 (Version 5)
Quarter: 2020Q1

REPORT INFORMATION
  Report Type: Spontaneous
  Country: CA (occurrence: CA)
  Receive Date: 20190409
  Receipt Date: 20200203
  Transmission Date: 20200409
  Serious: Yes (Other)
  Sender: FDA-Public Use
  Company Number: CA-ORION CORPORATION ORION PHARMA-TREX2019-1020

PATIENT
  Age: 67 Year
  Sex: Female

DRUGS (5)
  1. SHINGRIX [Concomitant]
     Active Substance: RECOMBINANT VARICELLA ZOSTER VIRUS (VZV) GLYCOPROTEIN E
     Route: 065
     Dates: start: 20190326, end: 20190326
  2. METHOTREXATE (TRADE NAME UNKNOWN) [Suspect]
     Active Substance: METHOTREXATE
     Indication: RHEUMATOID ARTHRITIS
     Route: 065
  3. XELJANZ [Concomitant]
     Active Substance: TOFACITINIB CITRATE
     Indication: RHEUMATOID ARTHRITIS
     Route: 065
     Dates: start: 201909
  4. METHOTREXATE (TRADE NAME UNKNOWN) [Suspect]
     Active Substance: METHOTREXATE
     Route: 065
  5. METHOTREXATE (TRADE NAME UNKNOWN) [Suspect]
     Active Substance: METHOTREXATE
     Route: 065
     Dates: end: 20190318

REACTIONS (15)
  - Intentional product misuse [Unknown]
  - Helicobacter infection [Unknown]
  - Eructation [Unknown]
  - Dyspepsia [Unknown]
  - Peripheral swelling [Unknown]
  - Pain [Unknown]
  - Thrombosis [Unknown]
  - Limb discomfort [Unknown]
  - Dyspnoea [Unknown]
  - Oesophageal disorder [Unknown]
  - Drug intolerance [Unknown]
  - Gastrointestinal disorder [Unknown]
  - Alopecia [Unknown]
  - Hypoaesthesia [Unknown]
  - Hyperaesthesia [Unknown]
